FAERS Safety Report 15695049 (Version 2)
Quarter: 2019Q1

REPORT INFORMATION
  Report Type: Report from Study
  Country: MX (occurrence: MX)
  Receive Date: 20181206
  Receipt Date: 20190118
  Transmission Date: 20190417
  Serious: Yes (Disabling, Other)
  Sender: FDA-Public Use
  Company Number: PHHY2018MX176312

PATIENT
  Sex: Male
  Weight: 64 kg

DRUGS (2)
  1. EXFORGE [Suspect]
     Active Substance: AMLODIPINE BESYLATE\VALSARTAN
     Dosage: 1 DF (AMLODIPINE 5 MG, VALSARTAN 160 MG) ), QD
     Route: 048
  2. EXFORGE [Suspect]
     Active Substance: AMLODIPINE BESYLATE\VALSARTAN
     Indication: HYPERTENSION
     Dosage: 1.5 DF, (1 IN THE MORNING AND 1/2 IN THE AFTERNOON) QD
     Route: 048
     Dates: start: 2002

REACTIONS (5)
  - Infarction [Recovered/Resolved]
  - Cerebrovascular accident [Not Recovered/Not Resolved]
  - Wrong technique in product usage process [Unknown]
  - Gait inability [Not Recovered/Not Resolved]
  - Inappropriate schedule of product administration [Unknown]

NARRATIVE: CASE EVENT DATE: 2002
